FAERS Safety Report 9297776 (Version 2)
Quarter: 2013Q2

REPORT INFORMATION
  Report Type: Spontaneous
  Country: US (occurrence: US)
  Receive Date: 20130520
  Receipt Date: 20130607
  Transmission Date: 20140414
  Serious: No
  Sender: FDA-Public Use
  Company Number: US-PFIZER INC-2013154349

PATIENT
  Age: 39 Year
  Sex: Female
  Weight: 49.89 kg

DRUGS (4)
  1. ZOLOFT [Suspect]
     Indication: DEPRESSION
     Dosage: 150 MG, 1X/DAY
     Route: 048
  2. ZOLOFT [Suspect]
     Indication: PANIC ATTACK
  3. ZOLOFT [Suspect]
     Indication: ANXIETY
  4. SERTRALINE HCL [Suspect]
     Dosage: UNK

REACTIONS (1)
  - Drug ineffective [Unknown]
